FAERS Safety Report 15458508 (Version 1)
Quarter: 2018Q4

REPORT INFORMATION
  Report Type: Spontaneous
  Country: JP (occurrence: JP)
  Receive Date: 20181003
  Receipt Date: 20181003
  Transmission Date: 20190204
  Serious: Yes (Death, Other)
  Sender: FDA-Public Use
  Company Number: JP-ASTELLAS-2018US042639

PATIENT
  Age: 78 Year
  Sex: Female

DRUGS (1)
  1. AMPHOTERICIN B, LIPOSOME [Suspect]
     Active Substance: AMPHOTERICIN B
     Indication: ENCEPHALITIS FUNGAL
     Route: 041

REACTIONS (2)
  - Multiple organ dysfunction syndrome [Fatal]
  - Renal impairment [Unknown]
